FAERS Safety Report 18310237 (Version 2)
Quarter: 2021Q1

REPORT INFORMATION
  Report Type: Spontaneous
  Country: US (occurrence: US)
  Receive Date: 20200924
  Receipt Date: 20210128
  Transmission Date: 20210419
  Serious: Yes (Hospitalization, Other)
  Sender: FDA-Public Use
  Company Number: US-PURDUE-USA-2020-0167644

PATIENT
  Sex: Male

DRUGS (6)
  1. AMBIEN [Concomitant]
     Active Substance: ZOLPIDEM TARTRATE
     Indication: SLEEP DISORDER
     Route: 065
  2. ZOLOFT [Concomitant]
     Active Substance: SERTRALINE HYDROCHLORIDE
     Indication: PRODUCT USED FOR UNKNOWN INDICATION
     Route: 065
  3. OXYCODONE HYDROCHLORIDE (SIMILAR TO NDA 22?272) [Suspect]
     Active Substance: OXYCODONE HYDROCHLORIDE
     Indication: PAIN
     Dosage: 20 MG, Q12H
     Route: 048
  4. OXYCONTIN [Suspect]
     Active Substance: OXYCODONE HYDROCHLORIDE
     Indication: PAIN
     Route: 048
  5. PERCOCET                           /00446701/ [Suspect]
     Active Substance: ACETAMINOPHEN\OXYCODONE HYDROCHLORIDE\OXYCODONE TEREPHTHALATE
     Indication: PAIN
     Dosage: 4 A DAY
     Route: 065
  6. FLEXERIL [Concomitant]
     Active Substance: CYCLOBENZAPRINE HYDROCHLORIDE
     Indication: PRODUCT USED FOR UNKNOWN INDICATION
     Dosage: 20 MG, BID
     Route: 065

REACTIONS (24)
  - Road traffic accident [Unknown]
  - Vertebral foraminal stenosis [Unknown]
  - Paraesthesia [Unknown]
  - Vomiting [Unknown]
  - Social avoidant behaviour [Unknown]
  - Urticaria [Unknown]
  - Hypoaesthesia [Unknown]
  - Nerve injury [Unknown]
  - Frustration tolerance decreased [Unknown]
  - Amnesia [Unknown]
  - Spinal fusion surgery [Unknown]
  - Arthropathy [Unknown]
  - Neck pain [Unknown]
  - Back pain [Unknown]
  - Memory impairment [Unknown]
  - Unevaluable event [Unknown]
  - Drug dependence [Unknown]
  - Fatigue [Unknown]
  - Psychiatric symptom [Unknown]
  - Mood altered [Unknown]
  - Thinking abnormal [Unknown]
  - Joint injury [Unknown]
  - Pain in extremity [Unknown]
  - Depression [Unknown]
